FAERS Safety Report 6969123-7 (Version None)
Quarter: 2010Q3

REPORT INFORMATION
  Report Type: 
  Country: None (occurrence: None)
  Receive Date: 20100907
  Receipt Date: 20100830
  Transmission Date: 20110219
  Serious: Yes (Other)
  Sender: FDA-Public Use
  Company Number: US-PFIZER INC-2010105165

PATIENT
  Sex: Female
  Weight: 53.061 kg

DRUGS (7)
  1. GLIBENCLAMIDE [Suspect]
     Dosage: UNK
  2. METFORMIN HCL [Suspect]
     Dosage: UNK
  3. AZITHROMYCIN [Suspect]
     Dosage: UNK
  4. IRON [Suspect]
     Dosage: UNK
  5. PROTONIX [Suspect]
     Dosage: UNK
  6. NORVASC [Concomitant]
  7. BENICAR [Concomitant]

REACTIONS (12)
  - ANAEMIA [None]
  - BODY TEMPERATURE INCREASED [None]
  - CHRONIC MYELOID LEUKAEMIA [None]
  - DISCOMFORT [None]
  - EPISTAXIS [None]
  - GASTROINTESTINAL DISORDER [None]
  - GASTROINTESTINAL HAEMORRHAGE [None]
  - GENERAL PHYSICAL HEALTH DETERIORATION [None]
  - PLATELET COUNT DECREASED [None]
  - UMBILICAL HERNIA [None]
  - WEIGHT DECREASED [None]
  - WHITE BLOOD CELL COUNT INCREASED [None]
